FAERS Safety Report 4905689-6 (Version None)
Quarter: 2006Q1

REPORT INFORMATION
  Report Type: 
  Country: None (occurrence: None)
  Receive Date: 20060203
  Receipt Date: 20060125
  Transmission Date: 20060701
  Serious: Yes (Other)
  Sender: FDA-Public Use
  Company Number: 2006012655

PATIENT
  Sex: Male
  Weight: 68.9467 kg

DRUGS (2)
  1. ZYRTEC [Suspect]
     Indication: NASAL CONGESTION
     Dosage: 10 + 5 MG (10 MG, 1 IN 1 D) - SEE IMAGE
  2. PROTONIX [Concomitant]

REACTIONS (4)
  - CROHN'S DISEASE [None]
  - DISCOMFORT [None]
  - DRUG DEPENDENCE [None]
  - URTICARIA GENERALISED [None]
